FAERS Safety Report 4961401-6 (Version None)
Quarter: 2006Q2

REPORT INFORMATION
  Report Type: 
  Country: None (occurrence: None)
  Receive Date: 20060403
  Receipt Date: 20051118
  Transmission Date: 20061013
  Serious: Yes (Hospitalization)
  Sender: FDA-Public Use
  Company Number: PR-MERCK-0511USA03382

PATIENT
  Age: 59 Year
  Sex: Female
  Weight: 66 kg

DRUGS (1)
  1. VIOXX [Suspect]
     Route: 048
     Dates: end: 20040511

REACTIONS (1)
  - CEREBROVASCULAR ACCIDENT [None]
